FAERS Safety Report 14200849 (Version 1)
Quarter: 2017Q4

REPORT INFORMATION
  Report Type: Spontaneous
  Country: US (occurrence: US)
  Receive Date: 20171117
  Receipt Date: 20171117
  Transmission Date: 20180321
  Serious: No
  Sender: FDA-Public Use
  Company Number: US-NOVOPROD-550391

PATIENT
  Age: 55 Year
  Sex: Male
  Weight: 86.17 kg

DRUGS (1)
  1. NOVOLOG [Suspect]
     Active Substance: INSULIN ASPART
     Indication: DIABETES MELLITUS
     Dosage: SLIDING SCALE
     Route: 058

REACTIONS (6)
  - Blood glucose decreased [Unknown]
  - Depression [Unknown]
  - Stress [Unknown]
  - Device malfunction [Unknown]
  - Feeling abnormal [Unknown]
  - Blood glucose increased [Unknown]
